FAERS Safety Report 5722390-X (Version None)
Quarter: 2008Q2

REPORT INFORMATION
  Report Type: 
  Country: None (occurrence: None)
  Receive Date: 20080429
  Receipt Date: 20071012
  Transmission Date: 20081010
  Serious: No
  Sender: FDA-Public Use
  Company Number: US-ASTRAZENECA-2007UW23768

PATIENT
  Age: 73 Year
  Sex: Female
  Weight: 68.9 kg

DRUGS (8)
  1. NEXIUM [Suspect]
     Indication: OESOPHAGEAL PAIN
     Route: 048
     Dates: start: 20071011
  2. VASOTEC [Concomitant]
  3. NORPRAMIN [Concomitant]
  4. CALTRATE [Concomitant]
  5. IMITREX [Concomitant]
  6. VICODIN [Concomitant]
  7. AMBIEN [Concomitant]
  8. ATIVAN [Concomitant]

REACTIONS (5)
  - ASTHENIA [None]
  - CHEST DISCOMFORT [None]
  - DIZZINESS [None]
  - DYSGEUSIA [None]
  - HYPOTENSION [None]
